FAERS Safety Report 17259476 (Version 2)
Quarter: 2020Q1

REPORT INFORMATION
  Report Type: Spontaneous
  Country: JP (occurrence: JP)
  Receive Date: 20200110
  Receipt Date: 20200226
  Transmission Date: 20200409
  Serious: Yes (Death, Other)
  Sender: FDA-Public Use
  Company Number: JP-009507513-1912JPN003768J

PATIENT
  Age: 55 Year
  Sex: Male
  Weight: 50 kg

DRUGS (13)
  1. ALOXI [Concomitant]
     Active Substance: PALONOSETRON HYDROCHLORIDE
     Indication: PROPHYLAXIS
     Dosage: 0.75 MILLIGRAM, QD
     Route: 042
     Dates: start: 20190326, end: 20190612
  2. KEYTRUDA [Suspect]
     Active Substance: PEMBROLIZUMAB
     Indication: NON-SMALL CELL LUNG CANCER
     Dosage: 200 MILLIGRAM, Q3W
     Route: 041
     Dates: start: 20190326, end: 20190925
  3. PREDONINE [Concomitant]
     Active Substance: PREDNISOLONE
     Dosage: UNK MILLIGRAM
     Route: 048
  4. PACLITAXEL. [Concomitant]
     Active Substance: PACLITAXEL
     Indication: LUNG NEOPLASM MALIGNANT
     Dosage: 130-160MG, QD
     Route: 041
     Dates: start: 20190326, end: 20190626
  5. CARBOPLATIN. [Concomitant]
     Active Substance: CARBOPLATIN
     Indication: LUNG NEOPLASM MALIGNANT
     Dosage: 700-800MG, QD
     Route: 041
     Dates: start: 20190326, end: 20190612
  6. ROZEREM [Concomitant]
     Active Substance: RAMELTEON
     Dosage: 8 MILLIGRAM
     Route: 048
  7. DEXART [Concomitant]
     Active Substance: DEXAMETHASONE SODIUM PHOSPHATE
     Indication: PROPHYLAXIS
     Dosage: 6.6-9.9MG, QD
     Route: 051
     Dates: start: 20190326, end: 20190626
  8. BELSOMRA [Concomitant]
     Active Substance: SUVOREXANT
     Dosage: UNK MILLIGRAM
     Route: 048
  9. ANORO ELLIPTA [Concomitant]
     Active Substance: UMECLIDINIUM BROMIDE\VILANTEROL TRIFENATATE
     Dosage: UNK
     Route: 065
  10. MAGNESIUM OXIDE. [Concomitant]
     Active Substance: MAGNESIUM OXIDE
     Dosage: UNK MILLIGRAM
     Route: 048
  11. PANTETHINE [Concomitant]
     Active Substance: PANTETHINE
     Dosage: UNK MILLIGRAM
     Route: 048
  12. PARIET [Concomitant]
     Active Substance: RABEPRAZOLE SODIUM
     Dosage: UNK MILLIGRAM
     Route: 048
  13. CARBOCISTEINE [Concomitant]
     Active Substance: CARBOCYSTEINE
     Dosage: UNK MILLIGRAM
     Route: 048

REACTIONS (4)
  - Rash [Recovering/Resolving]
  - Hepatic function abnormal [Recovering/Resolving]
  - Musculoskeletal pain [Recovering/Resolving]
  - Interstitial lung disease [Fatal]

NARRATIVE: CASE EVENT DATE: 20190329
